FAERS Safety Report 5136934-2 (Version None)
Quarter: 2006Q4

REPORT INFORMATION
  Report Type: 
  Country: None (occurrence: None)
  Receive Date: 20061023
  Receipt Date: 20061010
  Transmission Date: 20070319
  Serious: Yes (Other)
  Sender: FDA-Public Use
  Company Number: 2006124446

PATIENT
  Age: 38 Year
  Sex: Female

DRUGS (1)
  1. NIFEDIPINE [Suspect]

REACTIONS (2)
  - GINGIVITIS [None]
  - STOMATITIS [None]
